FAERS Safety Report 4454367-9 (Version None)
Quarter: 2004Q3

REPORT INFORMATION
  Report Type: 
  Country: None (occurrence: None)
  Receive Date: 20040826
  Receipt Date: 20040603
  Transmission Date: 20050211
  Serious: No
  Sender: FDA-Public Use
  Company Number: WAES 0406USA00307

PATIENT
  Sex: Female

DRUGS (4)
  1. ZETIA [Suspect]
     Indication: BLOOD CHOLESTEROL INCREASED
     Dosage: 10 MG/ DAILY/ PO
     Route: 048
     Dates: start: 20030601
  2. CLARINEX [Concomitant]
  3. PREVACID [Concomitant]
  4. TOPROL-XL [Concomitant]

REACTIONS (2)
  - PARAESTHESIA [None]
  - PLATELET COUNT INCREASED [None]
